FAERS Safety Report 5002416-1 (Version None)
Quarter: 2006Q2

REPORT INFORMATION
  Report Type: 
  Country: None (occurrence: None)
  Receive Date: 20060510
  Receipt Date: 20060424
  Transmission Date: 20061013
  Serious: Yes (Other)
  Sender: FDA-Public Use
  Company Number: 8016607

PATIENT
  Age: 5 Month
  Weight: 5.85 kg

DRUGS (1)
  1. KEPPRA [Suspect]
     Indication: INFANTILE SPASMS
     Dosage: 450 MG 3/D PO
     Route: 048

REACTIONS (4)
  - ACCIDENTAL EXPOSURE [None]
  - ALOPECIA [None]
  - DRUG ADMINISTRATION ERROR [None]
  - INCORRECT DOSE ADMINISTERED [None]
